FAERS Safety Report 4350018-2 (Version None)
Quarter: 2004Q2

REPORT INFORMATION
  Report Type: 
  Country: None (occurrence: None)
  Receive Date: 20040428
  Receipt Date: 20040428
  Transmission Date: 20050107
  Serious: Yes (Other)
  Sender: FDA-Public Use
  Company Number: None

PATIENT
  Age: 56 Year
  Sex: Female
  Weight: 80.7403 kg

DRUGS (3)
  1. LEVAQUIN [Suspect]
     Indication: BODY TEMPERATURE INCREASED
     Dosage: 1 PER DAY X 10 BUT I STOPPED AT 5
     Dates: start: 20031202, end: 20031206
  2. LEVAQUIN [Suspect]
     Indication: INFLUENZA
     Dosage: 1 PER DAY X 10 BUT I STOPPED AT 5
     Dates: start: 20031202, end: 20031206
  3. LEVAQUIN [Suspect]
     Indication: PNEUMONIA
     Dosage: 1 PER DAY X 10 BUT I STOPPED AT 5
     Dates: start: 20031202, end: 20031206

REACTIONS (10)
  - ANOREXIA [None]
  - ARTHRALGIA [None]
  - DISTURBANCE IN ATTENTION [None]
  - DIZZINESS [None]
  - DYSGEUSIA [None]
  - FEELING ABNORMAL [None]
  - JOINT SWELLING [None]
  - TENDERNESS [None]
  - TENDON DISORDER [None]
  - WEIGHT DECREASED [None]
